FAERS Safety Report 10003602 (Version 1)
Quarter: 2014Q1

REPORT INFORMATION
  Report Type: Spontaneous
  Country: US (occurrence: US)
  Receive Date: 20140312
  Receipt Date: 20140312
  Transmission Date: 20141002
  Serious: No
  Sender: FDA-Public Use
  Company Number: US-009507513-2012SP016896

PATIENT
  Age: 7 Year
  Sex: Female
  Weight: 19.96 kg

DRUGS (3)
  1. CLARITIN CHEWABLE TABLETS [Suspect]
     Dosage: 10 MG, QD
     Route: 048
     Dates: start: 201202
  2. CLARITIN CHEWABLE TABLETS [Suspect]
     Dosage: 10 MG, QAM
     Route: 048
     Dates: start: 20120306
  3. CLARITIN CHEWABLE TABLETS [Suspect]
     Dosage: 10 MG, QPM
     Route: 048
     Dates: start: 20120306

REACTIONS (1)
  - Overdose [Unknown]
